FAERS Safety Report 4979209-4 (Version None)
Quarter: 2006Q2

REPORT INFORMATION
  Report Type: 
  Country: None (occurrence: None)
  Receive Date: 20060421
  Receipt Date: 20060301
  Transmission Date: 20061013
  Serious: Yes (Other)
  Sender: FDA-Public Use
  Company Number: DE-GLAXOSMITHKLINE-D0048880A

PATIENT
  Sex: Female

DRUGS (1)
  1. LEUKERAN [Suspect]
     Dosage: 24MG EVERY TWO WEEKS
     Route: 065
     Dates: start: 20040901, end: 20051201

REACTIONS (2)
  - BACK PAIN [None]
  - BONE MARROW LEUKAEMIC CELL INFILTRATION [None]
